FAERS Safety Report 5852529-7 (Version None)
Quarter: 2008Q3

REPORT INFORMATION
  Report Type: 
  Country: None (occurrence: None)
  Receive Date: 20080820
  Receipt Date: 20080820
  Transmission Date: 20090109
  Serious: Yes (Other)
  Sender: FDA-Public Use
  Company Number: None

PATIENT
  Age: 51 Year
  Sex: Female
  Weight: 86.1834 kg

DRUGS (1)
  1. LISINOPRIL 75MG [Suspect]
     Indication: HYPERTENSION
     Dosage: 75 MG DAILY PO
     Route: 048
     Dates: start: 20080315, end: 20080422

REACTIONS (3)
  - COUGH [None]
  - PAIN [None]
  - SURGERY [None]
